FAERS Safety Report 11288374 (Version 1)
Quarter: 2015Q3

REPORT INFORMATION
  Report Type: Spontaneous
  Country: US (occurrence: US)
  Receive Date: 20150721
  Receipt Date: 20150721
  Transmission Date: 20151125
  Serious: No
  Sender: FDA-Public Use
  Company Number: US-UNITED THERAPEUTICS-UNT-2015-002675

PATIENT
  Sex: Female
  Weight: 104.99 kg

DRUGS (2)
  1. REMODULIN [Suspect]
     Active Substance: TREPROSTINIL
     Indication: PULMONARY ARTERIAL HYPERTENSION
     Dosage: 0.0185 ?G/KG/MIN, CONTINUING
     Route: 058
     Dates: start: 20140801
  2. SILDENAFIL. [Concomitant]
     Active Substance: SILDENAFIL
     Indication: PRODUCT USED FOR UNKNOWN INDICATION

REACTIONS (5)
  - Accidental overdose [Unknown]
  - Device issue [Unknown]
  - Flushing [Unknown]
  - Drug dose omission [Unknown]
  - Headache [Unknown]
